FAERS Safety Report 12269002 (Version 1)
Quarter: 2016Q2

REPORT INFORMATION
  Report Type: Spontaneous
  Country: FR (occurrence: FR)
  Receive Date: 20160414
  Receipt Date: 20160414
  Transmission Date: 20160815
  Serious: Yes (Life-Threatening, Hospitalization)
  Sender: FDA-Public Use
  Company Number: FR-ASTRAZENECA-2016SE37761

PATIENT
  Age: 27645 Day
  Sex: Female

DRUGS (9)
  1. TRIVASTAL SR [Concomitant]
     Active Substance: PIRIBEDIL
     Route: 065
  2. ORBENINE [Concomitant]
     Active Substance: CLOXACILLIN SODIUM
     Route: 048
     Dates: start: 20140903
  3. AZILECT [Concomitant]
     Active Substance: RASAGILINE MESYLATE
     Route: 065
  4. CALCIPARINE [Concomitant]
     Active Substance: HEPARIN CALCIUM
     Route: 065
  5. ALTEIS [Concomitant]
     Active Substance: OLMESARTAN MEDOXOMIL
     Route: 065
  6. OXYCONTIN SR [Concomitant]
     Route: 065
  7. INEXIUM [Suspect]
     Active Substance: ESOMEPRAZOLE
     Route: 048
     Dates: end: 20140924
  8. CIFLOX [Suspect]
     Active Substance: CIPROFLOXACIN
     Indication: ARTHRITIS BACTERIAL
     Route: 048
     Dates: start: 20140903, end: 20140924
  9. KARDEGIC [Concomitant]
     Active Substance: ASPIRIN LYSINE
     Route: 065

REACTIONS (5)
  - Nephritis allergic [Recovering/Resolving]
  - Decreased appetite [Recovered/Resolved]
  - Nausea [Recovered/Resolved]
  - Vomiting [Recovered/Resolved]
  - Tubulointerstitial nephritis [Recovering/Resolving]

NARRATIVE: CASE EVENT DATE: 20140923
